FAERS Safety Report 5515035-5 (Version None)
Quarter: 2007Q4

REPORT INFORMATION
  Report Type: 
  Country: None (occurrence: None)
  Receive Date: 20071113
  Receipt Date: 20061127
  Transmission Date: 20080405
  Serious: No
  Sender: FDA-Public Use
  Company Number: A0628677A

PATIENT
  Age: 69 Year
  Sex: Female

DRUGS (9)
  1. COREG [Suspect]
     Indication: LEFT VENTRICULAR DYSFUNCTION
     Dosage: 1TAB UNKNOWN
     Route: 048
     Dates: start: 20060401
  2. FOSAMAX [Concomitant]
  3. ZOLOFT [Concomitant]
  4. DIOVAN [Concomitant]
  5. AMBIEN [Concomitant]
  6. VYTORIN [Concomitant]
  7. MULTI-VITAMIN [Concomitant]
  8. CALCIUM [Concomitant]
  9. ASPIRIN [Concomitant]

REACTIONS (1)
  - CONTUSION [None]
